FAERS Safety Report 25003311 (Version 1)
Quarter: 2025Q1

REPORT INFORMATION
  Report Type: Spontaneous
  Country: US (occurrence: US)
  Receive Date: 20250224
  Receipt Date: 20250224
  Transmission Date: 20250409
  Serious: No
  Sender: ELI LILLY AND COMPANY
  Company Number: US-ELI_LILLY_AND_COMPANY-US202502016733

PATIENT
  Age: 67 Year
  Sex: Female

DRUGS (8)
  1. MOUNJARO [Suspect]
     Active Substance: TIRZEPATIDE
     Indication: Weight control
     Dosage: 2.5 MG, WEEKLY (1/W)
     Route: 065
     Dates: start: 20250217
  2. MOUNJARO [Suspect]
     Active Substance: TIRZEPATIDE
     Indication: Weight control
     Dosage: 2.5 MG, WEEKLY (1/W)
     Route: 065
     Dates: start: 20250217
  3. MOUNJARO [Suspect]
     Active Substance: TIRZEPATIDE
     Indication: Weight control
     Dosage: 2.5 MG, WEEKLY (1/W)
     Route: 065
     Dates: start: 20250217
  4. MOUNJARO [Suspect]
     Active Substance: TIRZEPATIDE
     Indication: Weight control
     Dosage: 2.5 MG, WEEKLY (1/W)
     Route: 065
     Dates: start: 20250217
  5. MOUNJARO [Suspect]
     Active Substance: TIRZEPATIDE
     Indication: Chronic obstructive pulmonary disease
  6. MOUNJARO [Suspect]
     Active Substance: TIRZEPATIDE
     Indication: Chronic obstructive pulmonary disease
  7. MOUNJARO [Suspect]
     Active Substance: TIRZEPATIDE
     Indication: Chronic obstructive pulmonary disease
  8. MOUNJARO [Suspect]
     Active Substance: TIRZEPATIDE
     Indication: Chronic obstructive pulmonary disease

REACTIONS (4)
  - Off label use [Unknown]
  - Decreased appetite [Unknown]
  - Nausea [Recovering/Resolving]
  - Constipation [Unknown]

NARRATIVE: CASE EVENT DATE: 20250217
